FAERS Safety Report 10232526 (Version 4)
Quarter: 2014Q4

REPORT INFORMATION
  Report Type: Report from Study
  Country: NL (occurrence: NL)
  Receive Date: 20140612
  Receipt Date: 20141222
  Transmission Date: 20150528
  Serious: Yes (Death)
  Sender: FDA-Public Use
  Company Number: NL-JNJFOC-20140306187

PATIENT
  Age: 65 Year
  Sex: Female
  Weight: 78 kg

DRUGS (6)
  1. METOPROLOL [Concomitant]
     Active Substance: METOPROLOL
     Route: 065
     Dates: start: 20131126
  2. XARELTO [Suspect]
     Active Substance: RIVAROXABAN
     Indication: CEREBROVASCULAR ACCIDENT PROPHYLAXIS
     Route: 048
     Dates: start: 20131201
  3. XARELTO [Suspect]
     Active Substance: RIVAROXABAN
     Indication: ATRIAL FIBRILLATION
     Route: 048
     Dates: start: 20131201
  4. VALSARTAN. [Concomitant]
     Active Substance: VALSARTAN
     Route: 065
     Dates: start: 20131126
  5. SIMVASTATINE [Concomitant]
     Active Substance: SIMVASTATIN
     Route: 065
     Dates: start: 20111214
  6. TAMBOCOR [Concomitant]
     Active Substance: FLECAINIDE ACETATE
     Route: 065
     Dates: start: 20131127

REACTIONS (1)
  - Sudden death [Fatal]

NARRATIVE: CASE EVENT DATE: 20140215
